FAERS Safety Report 9392149 (Version 1)
Quarter: 2013Q3

REPORT INFORMATION
  Report Type: Spontaneous
  Country: AU (occurrence: AU)
  Receive Date: 20130709
  Receipt Date: 20130709
  Transmission Date: 20140515
  Serious: Yes (Other)
  Sender: FDA-Public Use
  Company Number: AU-ROCHE-1245881

PATIENT
  Sex: Male

DRUGS (3)
  1. XELODA [Suspect]
     Indication: NEOPLASM OF THYMUS
     Route: 065
     Dates: start: 2012
  2. SANDOSTATIN [Concomitant]
  3. SUTENT [Concomitant]
     Route: 065
     Dates: start: 20130528

REACTIONS (3)
  - Disease progression [Unknown]
  - Pancytopenia [Not Recovered/Not Resolved]
  - Thrombocytopenia [Not Recovered/Not Resolved]
